FAERS Safety Report 8793848 (Version 1)
Quarter: 2012Q4

REPORT INFORMATION
  Report Type: 
  Country: US (occurrence: US)
  Receive Date: 20120917
  Receipt Date: 20120917
  Transmission Date: 20130627
  Serious: Yes (Other)
  Sender: FDA-Public Use
  Company Number: US-JNJFOC-20120903995

PATIENT
  Age: 83 Year
  Sex: Female

DRUGS (7)
  1. XARELTO [Suspect]
     Indication: CEREBROVASCULAR ACCIDENT PROPHYLAXIS
     Route: 048
     Dates: start: 20120605
  2. XARELTO [Suspect]
     Indication: ATRIAL FIBRILLATION
     Route: 048
     Dates: start: 20120605
  3. ALTACE [Concomitant]
  4. ATENOLOL [Concomitant]
  5. DIGOXIN [Concomitant]
  6. PRAVASTATIN [Concomitant]
  7. DILTIAZEM [Concomitant]
     Indication: HEART RATE INCREASED

REACTIONS (3)
  - Platelet count decreased [Unknown]
  - Bleeding time prolonged [Unknown]
  - Drug dose omission [Unknown]
